FAERS Safety Report 11726328 (Version 1)
Quarter: 2015Q4

REPORT INFORMATION
  Report Type: Report from Study
  Country: US (occurrence: US)
  Receive Date: 20151112
  Receipt Date: 20151112
  Transmission Date: 20160304
  Serious: Yes (Hospitalization, Other)
  Sender: FDA-Public Use
  Company Number: US-AMGEN-USASL2015118032

PATIENT
  Age: 76 Year
  Sex: Male

DRUGS (1)
  1. ENBREL [Suspect]
     Active Substance: ETANERCEPT
     Indication: PRODUCT USED FOR UNKNOWN INDICATION
     Dosage: UNK UNK, UNK
     Route: 065

REACTIONS (8)
  - Lung infection [Unknown]
  - Spinal operation [Unknown]
  - Monoplegia [Unknown]
  - Pneumonia [Unknown]
  - Impaired healing [Unknown]
  - Pain [Unknown]
  - Cerebrospinal fluid leakage [Unknown]
  - Nerve injury [Unknown]
